FAERS Safety Report 13274931 (Version 1)
Quarter: 2017Q1

REPORT INFORMATION
  Report Type: Report from Study
  Country: US (occurrence: US)
  Receive Date: 20170227
  Receipt Date: 20170227
  Transmission Date: 20170428
  Serious: Yes (Other)
  Sender: FDA-Public Use
  Company Number: US-GILEAD-2017-0256737

PATIENT
  Age: 77 Year
  Sex: Female

DRUGS (1)
  1. AMBRISENTAN [Suspect]
     Active Substance: AMBRISENTAN
     Indication: PRODUCT USED FOR UNKNOWN INDICATION
     Dosage: 10 MG, UNK
     Route: 065
     Dates: start: 20120320

REACTIONS (7)
  - Fatigue [Unknown]
  - Gastroenteritis viral [Unknown]
  - Dyspnoea [Unknown]
  - Pulmonary embolism [Unknown]
  - Dysstasia [Unknown]
  - Hypertension [Unknown]
  - Malaise [Unknown]
